FAERS Safety Report 8312610-X (Version None)
Quarter: 2012Q2

REPORT INFORMATION
  Report Type: 
  Country: None (occurrence: None)
  Receive Date: 20120424
  Receipt Date: 20120416
  Transmission Date: 20120825
  Serious: Yes (Other)
  Sender: FDA-Public Use
  Company Number: DSA_48852_2012

PATIENT
  Sex: Male

DRUGS (9)
  1. BENADRYL [Concomitant]
  2. INDERAL LA [Concomitant]
  3. FLONASE [Concomitant]
  4. XENAZINE [Suspect]
     Indication: TARDIVE DYSKINESIA
     Dosage: (1/2 TABLET;   ORAL), (25 MG TID ORAL)
     Route: 048
     Dates: start: 20120104
  5. XENAZINE [Suspect]
     Indication: TARDIVE DYSKINESIA
     Dosage: (1/2 TABLET;   ORAL), (25 MG TID ORAL)
     Route: 048
     Dates: start: 20120101
  6. LAMOTRIGINE [Concomitant]
  7. NEXIUM [Concomitant]
  8. NORVASC [Concomitant]
  9. CARBAMAZEPINE [Concomitant]

REACTIONS (2)
  - NEURALGIA [None]
  - MUSCLE SPASMS [None]
